FAERS Safety Report 16282501 (Version 1)
Quarter: 2019Q2

REPORT INFORMATION
  Report Type: Spontaneous
  Country: FR (occurrence: FR)
  Receive Date: 20190507
  Receipt Date: 20190507
  Transmission Date: 20190711
  Serious: Yes (Other)
  Sender: FDA-Public Use
  Company Number: FR-TEVA-2019-FR-1045724

PATIENT
  Age: 85 Year
  Sex: Male

DRUGS (4)
  1. LEVOFLOXACINE [Suspect]
     Active Substance: LEVOFLOXACIN
     Indication: INFECTION
     Route: 048
     Dates: start: 20160722, end: 201608
  2. INNOHEP [Suspect]
     Active Substance: TINZAPARIN SODIUM
     Indication: THROMBOSIS PROPHYLAXIS
     Route: 058
     Dates: start: 20160722
  3. TAMOXIFENE (CITRATE DE) [Suspect]
     Active Substance: TAMOXIFEN CITRATE
     Indication: PROSTATE CANCER
     Route: 048
  4. RIFAMPICINE [Suspect]
     Active Substance: RIFAMPIN
     Indication: INFECTION
     Route: 048
     Dates: start: 20160722, end: 201608

REACTIONS (3)
  - Alanine aminotransferase increased [Recovered/Resolved]
  - Aspartate aminotransferase increased [Recovered/Resolved]
  - Hepatocellular injury [Recovered/Resolved]

NARRATIVE: CASE EVENT DATE: 20160727
